FAERS Safety Report 14079278 (Version 2)
Quarter: 2017Q4

REPORT INFORMATION
  Report Type: Report from Study
  Country: CO (occurrence: CO)
  Receive Date: 20171012
  Receipt Date: 20171020
  Transmission Date: 20180321
  Serious: Yes (Hospitalization)
  Sender: FDA-Public Use
  Company Number: CO-ACTELION-A-CH2017-160389

PATIENT
  Age: 37 Year
  Sex: Female

DRUGS (1)
  1. TRACLEER [Suspect]
     Active Substance: BOSENTAN
     Indication: PULMONARY ARTERIAL HYPERTENSION
     Dosage: 125 MG, Q12HRS
     Route: 048
     Dates: start: 20120906

REACTIONS (6)
  - Pulmonary arterial hypertension [Unknown]
  - Ejection fraction abnormal [Unknown]
  - Anaemia [Recovering/Resolving]
  - Treatment failure [Unknown]
  - Cardiomegaly [Unknown]
  - Condition aggravated [Unknown]

NARRATIVE: CASE EVENT DATE: 201709
